FAERS Safety Report 9540772 (Version 3)
Quarter: 2014Q2

REPORT INFORMATION
  Report Type: Report from Study
  Country: US (occurrence: US)
  Receive Date: 20130920
  Receipt Date: 20140506
  Transmission Date: 20141212
  Serious: Yes (Other)
  Sender: FDA-Public Use
  Company Number: US-EXELIXIS-XL18413003302

PATIENT
  Age: 70 Year
  Sex: Male
  Weight: 80.1 kg

DRUGS (13)
  1. XL184 [Suspect]
     Indication: PROSTATE CANCER
     Dosage: 60 MG, QD
     Route: 048
     Dates: start: 20130327, end: 20130908
  2. XL184 [Suspect]
     Dosage: 40 MG, QD
     Route: 048
     Dates: start: 20130909, end: 20130915
  3. XL184 [Suspect]
     Indication: PROSTATE CANCER
     Dosage: 5 MG, BID
     Route: 048
     Dates: start: 20130527, end: 20130915
  4. BENAZEPRIL [Concomitant]
  5. AMLODIPINE [Concomitant]
  6. METFORMIN [Concomitant]
  7. GLIPIZIDE [Concomitant]
  8. PROBIOTICS [Concomitant]
  9. BABY ASPIRIN [Concomitant]
  10. XGEVA [Concomitant]
  11. IBUPROFEN [Concomitant]
  12. ZOFRAN [Concomitant]
  13. IMODIUM [Concomitant]

REACTIONS (1)
  - Colonic abscess [Recovered/Resolved]
